FAERS Safety Report 11612701 (Version 1)
Quarter: 2015Q4

REPORT INFORMATION
  Report Type: Spontaneous
  Country: US (occurrence: US)
  Receive Date: 20151008
  Receipt Date: 20151008
  Transmission Date: 20160304
  Serious: Yes (Hospitalization)
  Sender: FDA-Public Use
  Company Number: US-JUBILANT CADISTA PHARMACEUTICALS-2015JUB00308

PATIENT
  Age: 40 Year
  Sex: Male

DRUGS (5)
  1. CARBAMAZEPINE. [Suspect]
     Active Substance: CARBAMAZEPINE
     Dosage: 1800 MG, UNK
  2. FLUOXETINE [Suspect]
     Active Substance: FLUOXETINE HYDROCHLORIDE
  3. VERAPAMIL [Suspect]
     Active Substance: VERAPAMIL HYDROCHLORIDE
     Dosage: 3.6 G, UNK
  4. ETHANOL [Suspect]
     Active Substance: ALCOHOL
  5. NIFEDIPINE. [Suspect]
     Active Substance: NIFEDIPINE

REACTIONS (4)
  - Intentional overdose [Recovered/Resolved]
  - Atrioventricular block first degree [Recovered/Resolved]
  - Shock [Recovered/Resolved]
  - Electrocardiogram QT prolonged [Recovered/Resolved]
